FAERS Safety Report 4788316-0 (Version None)
Quarter: 2005Q4

REPORT INFORMATION
  Report Type: 
  Country: None (occurrence: None)
  Receive Date: 20051003
  Receipt Date: 20050919
  Transmission Date: 20060501
  Serious: Yes (Other)
  Sender: FDA-Public Use
  Company Number: 2005058966

PATIENT
  Age: 51 Year
  Sex: Female
  Weight: 77.1115 kg

DRUGS (3)
  1. BEXTRA [Suspect]
     Indication: PAIN
     Dosage: 10 MG (10 MG, 1 IN 1 D)
     Dates: start: 20050101, end: 20050407
  2. BEXTRA [Suspect]
     Indication: SWELLING
     Dosage: 10 MG (10 MG, 1 IN 1 D)
     Dates: start: 20050101, end: 20050407
  3. PREMARIN [Concomitant]

REACTIONS (10)
  - AGEUSIA [None]
  - DEHYDRATION [None]
  - DYSGEUSIA [None]
  - OEDEMA MOUTH [None]
  - PIGMENTATION DISORDER [None]
  - PRURITUS [None]
  - RASH ERYTHEMATOUS [None]
  - RASH GENERALISED [None]
  - SKIN DISCOLOURATION [None]
  - SWELLING FACE [None]
